FAERS Safety Report 8109052 (Version 12)
Quarter: 2013Q1

REPORT INFORMATION
  Report Type: Spontaneous
  Country: CA (occurrence: CA)
  Receive Date: 20110826
  Receipt Date: 20130227
  Transmission Date: 20140127
  Serious: Yes (Death, Other)
  Sender: FDA-Public Use
  Company Number: PHHY2010CA76364

PATIENT
  Sex: Female

DRUGS (6)
  1. SANDOSTATIN LAR [Suspect]
     Indication: SMALL INTESTINE CARCINOMA
     Dosage: 80 MG, QMO
     Route: 030
     Dates: start: 20080428
  2. SANDOSTATIN LAR [Suspect]
     Dosage: 80 MG, EVERY FOUR WEEKS
     Route: 030
  3. SANDOSTATIN LAR [Suspect]
     Dosage: 80 MG, ONCE IN A MONTH
     Route: 030
  4. SANDOSTATIN LAR [Suspect]
     Dosage: 80 MG, EVERY 4 WEEKS
     Route: 030
     Dates: end: 20120910
  5. AFINITOR [Suspect]
     Indication: CARCINOID TUMOUR
     Dosage: 10 MG, EVERY DAY
     Route: 048
  6. AFINITOR [Suspect]
     Dosage: 10 MG, UNK
     Route: 048

REACTIONS (21)
  - Malignant neoplasm progression [Fatal]
  - Urinary tract infection [Unknown]
  - Pneumonia [Unknown]
  - Malaise [Unknown]
  - Fall [Unknown]
  - Contusion [Unknown]
  - Injection site mass [Unknown]
  - Myalgia [Unknown]
  - Pain [Unknown]
  - Blood potassium decreased [Unknown]
  - Pallor [Unknown]
  - Lethargy [Unknown]
  - Non-cardiac chest pain [Unknown]
  - Pain in extremity [Unknown]
  - Confusional state [Unknown]
  - Neck pain [Unknown]
  - Decreased appetite [Unknown]
  - Nausea [Unknown]
  - Fatigue [Unknown]
  - Diarrhoea [Unknown]
  - Thrombosis [Unknown]
